FAERS Safety Report 5718564-4 (Version None)
Quarter: 2008Q2

REPORT INFORMATION
  Report Type: 
  Country: None (occurrence: None)
  Receive Date: 20080425
  Receipt Date: 20080314
  Transmission Date: 20081010
  Serious: Yes (Other)
  Sender: FDA-Public Use
  Company Number: FR-PFIZER INC-2008014758

PATIENT
  Sex: Male
  Weight: 93.2 kg

DRUGS (2)
  1. CHAMPIX [Suspect]
     Indication: SMOKING CESSATION THERAPY
     Route: 048
     Dates: start: 20071226, end: 20080101
  2. ZOCOR [Concomitant]
     Route: 048

REACTIONS (1)
  - HYPERTENSION [None]
